FAERS Safety Report 10553441 (Version 1)
Quarter: 2014Q4

REPORT INFORMATION
  Report Type: Spontaneous
  Country: US (occurrence: US)
  Receive Date: 20141030
  Receipt Date: 20141030
  Transmission Date: 20150529
  Serious: Yes (Other)
  Sender: FDA-Public Use
  Company Number: US-BEH-2014045834

PATIENT
  Sex: Female
  Weight: 73 kg

DRUGS (29)
  1. SINGULAIR [Concomitant]
     Active Substance: MONTELUKAST SODIUM
  2. LIDOCAINE. [Concomitant]
     Active Substance: LIDOCAINE
  3. DOXYCYCLINE. [Concomitant]
     Active Substance: DOXYCYCLINE
  4. DICYCLOMINE [Concomitant]
     Active Substance: DICYCLOMINE HYDROCHLORIDE
  5. OMEGA 3 [Concomitant]
     Active Substance: OMEGA-3 FATTY ACIDS
  6. ZYRTEC-D [Concomitant]
     Active Substance: CETIRIZINE HYDROCHLORIDE\PSEUDOEPHEDRINE HYDROCHLORIDE
  7. PROTONIX [Concomitant]
     Active Substance: PANTOPRAZOLE SODIUM
  8. CYTOMEL [Concomitant]
     Active Substance: LIOTHYRONINE SODIUM
  9. EPIPEN [Concomitant]
     Active Substance: EPINEPHRINE
  10. POTASSIUM CL [Concomitant]
     Active Substance: POTASSIUM CHLORIDE
  11. PALGIC [Concomitant]
     Active Substance: CARBINOXAMINE MALEATE
  12. PRIVIGEN [Suspect]
     Active Substance: HUMAN IMMUNOGLOBULIN G
     Indication: IMMUNODEFICIENCY COMMON VARIABLE
     Route: 042
  13. HEPARIN [Concomitant]
     Active Substance: HEPARIN SODIUM
  14. SODIUM CHLORIDE. [Concomitant]
     Active Substance: SODIUM CHLORIDE
  15. NASONEX [Concomitant]
     Active Substance: MOMETASONE FUROATE
  16. VITAMIN D [Concomitant]
     Active Substance: CHOLECALCIFEROL
  17. ACETAMINOPHEN. [Concomitant]
     Active Substance: ACETAMINOPHEN
  18. METHOTREXATE [Concomitant]
     Active Substance: METHOTREXATE
  19. COREG [Concomitant]
     Active Substance: CARVEDILOL
  20. SYNTHROID [Concomitant]
     Active Substance: LEVOTHYROXINE SODIUM
  21. PREDNISONE. [Concomitant]
     Active Substance: PREDNISONE
  22. DIPHENHYDRAMINE [Concomitant]
     Active Substance: DIPHENHYDRAMINE
  23. LIDOCAINE/PRILOCAINE [Concomitant]
  24. LASIX [Concomitant]
     Active Substance: FUROSEMIDE
  25. RESTORIL [Concomitant]
     Active Substance: TEMAZEPAM
  26. FOLIC ACID. [Concomitant]
     Active Substance: FOLIC ACID
  27. HYDROXYZINE [Concomitant]
     Active Substance: HYDROXYZINE\HYDROXYZINE HYDROCHLORIDE
  28. ABILIFY [Concomitant]
     Active Substance: ARIPIPRAZOLE
  29. CELEXA [Concomitant]
     Active Substance: CITALOPRAM HYDROBROMIDE

REACTIONS (3)
  - Spinal fracture [Unknown]
  - Sinusitis [Unknown]
  - Urinary tract infection [Unknown]
